FAERS Safety Report 4268846-0 (Version None)
Quarter: 2004Q1

REPORT INFORMATION
  Report Type: 
  Country: None (occurrence: None)
  Receive Date: 20040113
  Receipt Date: 20040105
  Transmission Date: 20041129
  Serious: Yes (Hospitalization)
  Sender: FDA-Public Use
  Company Number: 200410037FR

PATIENT
  Age: 45 Year
  Sex: Male
  Weight: 71 kg

DRUGS (3)
  1. ARAVA [Suspect]
     Indication: RHEUMATOID ARTHRITIS
     Route: 048
     Dates: start: 20000101, end: 20010101
  2. ENBREL [Suspect]
     Indication: RHEUMATOID ARTHRITIS
     Route: 058
     Dates: start: 20020114, end: 20030701
  3. CORTANCYL [Concomitant]
     Indication: RHEUMATOID ARTHRITIS
     Route: 048

REACTIONS (8)
  - ABDOMINAL DISTENSION [None]
  - ALOPECIA [None]
  - DIARRHOEA [None]
  - EAR PAIN [None]
  - LIBIDO DECREASED [None]
  - LYMPHOMA [None]
  - PAIN [None]
  - SYNOVITIS [None]
